FAERS Safety Report 21066607 (Version 2)
Quarter: 2022Q4

REPORT INFORMATION
  Report Type: Report from Study
  Country: NL (occurrence: NL)
  Receive Date: 20220711
  Receipt Date: 20221201
  Transmission Date: 20230113
  Serious: Yes (Hospitalization)
  Sender: FDA-Public Use
  Company Number: NL-ABBVIE-22K-114-4462470-00

PATIENT
  Sex: Male

DRUGS (12)
  1. CARBIDOPA\LEVODOPA [Suspect]
     Active Substance: CARBIDOPA\LEVODOPA
     Indication: Parkinson^s disease
     Dosage: REMAINS AT 24 HOURS
     Route: 050
     Dates: start: 20220222
  2. CARBIDOPA\LEVODOPA [Suspect]
     Active Substance: CARBIDOPA\LEVODOPA
     Dosage: MD: 8.0ML, CD: 2.7ML/H, ED: 1.0ML, END: 1.0ML, CND: 1.4ML/H?REMAINS AT 24 HOURS
     Route: 050
  3. CARBIDOPA\LEVODOPA [Suspect]
     Active Substance: CARBIDOPA\LEVODOPA
     Dosage: MD: 5.0ML, CD: 4.2ML/H, ED: 2.0ML, END: 1.0ML, CND: 2.6ML/H?DRUG START DATE WAS 2022.?REMAINS AT ...
     Route: 050
  4. CARBIDOPA\LEVODOPA [Suspect]
     Active Substance: CARBIDOPA\LEVODOPA
     Dosage: MD: 5.0ML, CD: 4.2ML/H, ED: 2.0ML, CND:2.6 ML/H, END:1.0 ML?REMAINS AT 24 HOURS
     Route: 050
  5. CARBIDOPA\LEVODOPA [Suspect]
     Active Substance: CARBIDOPA\LEVODOPA
     Dosage: CD: 3.6 ML/H, ED: 2.2 ML?REMAINS AT 24 HOURS
     Route: 050
  6. CARBIDOPA\LEVODOPA [Suspect]
     Active Substance: CARBIDOPA\LEVODOPA
     Dosage: CND:2.8 ML/H, END:1.0 ML?REMAINS AT 24 HOURS
     Route: 050
  7. CARBIDOPA\LEVODOPA [Suspect]
     Active Substance: CARBIDOPA\LEVODOPA
     Dosage: MD: 5.0ML, CD: 3.6ML/H, ED: 2.2ML, CND:2.8 ML/H, END:1.0 ML?REMAINS AT 24 HOURS
     Route: 050
  8. CARBIDOPA\LEVODOPA [Suspect]
     Active Substance: CARBIDOPA\LEVODOPA
     Dosage: CD: 3.5 ML/H?REMAINS AT 24 HOURS
     Route: 050
  9. CARBIDOPA\LEVODOPA [Concomitant]
     Active Substance: CARBIDOPA\LEVODOPA
     Indication: Product used for unknown indication
     Dosage: FREQUENCY 8.5 IN 1 DAY, STOP WITH START DUODOPA
  10. LEVODOPA/CARBIDOPA PCH RETARD [Concomitant]
     Indication: Product used for unknown indication
     Dosage: STOP WITH START NIGHT PUMP
  11. NEUPRO [Concomitant]
     Active Substance: ROTIGOTINE
     Indication: Product used for unknown indication
  12. POLYETHYLENE GLYCOLS [Concomitant]
     Active Substance: POLYETHYLENE GLYCOLS
     Indication: Bowel movement irregularity

REACTIONS (19)
  - Splenic injury [Recovered/Resolved]
  - Rib fracture [Recovered/Resolved]
  - Fall [Recovered/Resolved]
  - Walking aid user [Not Recovered/Not Resolved]
  - Loss of personal independence in daily activities [Not Recovered/Not Resolved]
  - Muscle twitching [Not Recovered/Not Resolved]
  - General physical health deterioration [Not Recovered/Not Resolved]
  - Dyskinesia [Not Recovered/Not Resolved]
  - Bone fragmentation [Not Recovered/Not Resolved]
  - Device connection issue [Recovered/Resolved]
  - Dyschezia [Not Recovered/Not Resolved]
  - Sleep deficit [Not Recovered/Not Resolved]
  - Therapeutic product effect decreased [Not Recovered/Not Resolved]
  - Erythema [Not Recovered/Not Resolved]
  - Faeces hard [Not Recovered/Not Resolved]
  - Fatigue [Not Recovered/Not Resolved]
  - Freezing phenomenon [Not Recovered/Not Resolved]
  - Unevaluable event [Not Recovered/Not Resolved]
  - Joint swelling [Not Recovered/Not Resolved]

NARRATIVE: CASE EVENT DATE: 20220707
